FAERS Safety Report 11968452 (Version 2)
Quarter: 2016Q1

REPORT INFORMATION
  Report Type: Spontaneous
  Country: US (occurrence: US)
  Receive Date: 20160128
  Receipt Date: 20160128
  Transmission Date: 20160526
  Serious: Yes (Other)
  Sender: FDA-Public Use
  Company Number: CHPA2016US001246

PATIENT
  Age: 77 Year
  Sex: Female

DRUGS (1)
  1. VOLTAREN [Suspect]
     Active Substance: DICLOFENAC SODIUM
     Indication: MUSCULOSKELETAL PAIN
     Dosage: UNK

REACTIONS (5)
  - Product use issue [Unknown]
  - Arthritis [Not Recovered/Not Resolved]
  - Lip disorder [Recovered/Resolved]
  - Wrong technique in product usage process [Unknown]
  - Drug administered at inappropriate site [Unknown]
